FAERS Safety Report 8532926-1 (Version None)
Quarter: 2012Q3

REPORT INFORMATION
  Report Type: 
  Country: None (occurrence: None)
  Receive Date: 20120724
  Receipt Date: 20120714
  Transmission Date: 20120928
  Serious: Yes (Hospitalization)
  Sender: FDA-Public Use
  Company Number: US-BAYER-2011-075663

PATIENT
  Age: 19 Year
  Sex: Female

DRUGS (5)
  1. YAZ [Suspect]
     Dosage: UNK
     Dates: start: 20081101, end: 20090301
  2. LEVSIN [Concomitant]
     Dosage: 0.125 MG, TID
     Dates: start: 20090423
  3. ACIPHEX [Concomitant]
     Dosage: UNK
     Route: 048
     Dates: start: 20090316
  4. NEXIUM [Concomitant]
  5. ALIMENTARY TRACT AND METABOLISM [Concomitant]

REACTIONS (2)
  - GALLBLADDER INJURY [None]
  - BILIARY DYSKINESIA [None]
